FAERS Safety Report 10760630 (Version 2)
Quarter: 2015Q1

REPORT INFORMATION
  Report Type: Spontaneous
  Country: FR (occurrence: None)
  Receive Date: 20150202
  Receipt Date: 20150209
  Transmission Date: 20150721
  Serious: Yes (Life-Threatening)
  Sender: FDA-Public Use
  Company Number: 2015031151

PATIENT
  Age: 63 Year
  Sex: Female

DRUGS (1)
  1. FRAGMINE (DALTEPARIN SODIUM) SOLUTION FOR INJECTION [Suspect]
     Active Substance: DALTEPARIN SODIUM
     Indication: THROMBOSIS PROPHYLAXIS
     Dosage: 5000 IU, 1X/DAY, SUBCUTANEOUS
     Route: 058
     Dates: start: 20141007, end: 20141014

REACTIONS (2)
  - Pulmonary embolism [None]
  - Drug ineffective [None]

NARRATIVE: CASE EVENT DATE: 20141014
